FAERS Safety Report 19029955 (Version 4)
Quarter: 2021Q4

REPORT INFORMATION
  Report Type: Spontaneous
  Country: GB (occurrence: GB)
  Receive Date: 20210319
  Receipt Date: 20211016
  Transmission Date: 20220304
  Serious: Yes (Other)
  Sender: FDA-Public Use
  Company Number: GB-TEVA-2021-GB-1892482

PATIENT
  Age: 73 Year
  Sex: Male

DRUGS (7)
  1. DOXAZOSIN [Suspect]
     Active Substance: DOXAZOSIN MESYLATE
     Indication: Blood pressure increased
     Dosage: TO A MAXIMUM OF 16 MG A DAY
     Route: 065
     Dates: start: 2019, end: 2021
  2. DOXAZOSIN [Suspect]
     Active Substance: DOXAZOSIN MESYLATE
     Indication: Hypertension
     Dosage: 16 MILLIGRAM DAILY;
     Route: 048
     Dates: end: 20210217
  3. FELODIPINE [Concomitant]
     Active Substance: FELODIPINE
  4. CLOPIDOGREL BESILATE [Concomitant]
     Active Substance: CLOPIDOGREL BESILATE
  5. EZETIMIBE [Concomitant]
     Active Substance: EZETIMIBE
     Route: 065
  6. LANSOPRAZOLE [Concomitant]
     Active Substance: LANSOPRAZOLE
     Route: 065
  7. LEVOTHYROXINE [Concomitant]
     Active Substance: LEVOTHYROXINE
     Route: 065

REACTIONS (14)
  - Transient ischaemic attack [Unknown]
  - Peripheral swelling [Recovering/Resolving]
  - Joint swelling [Unknown]
  - Gait inability [Unknown]
  - Gait disturbance [Recovering/Resolving]
  - Fall [Unknown]
  - Impaired driving ability [Unknown]
  - Anxiety [Unknown]
  - Somnolence [Unknown]
  - Pollakiuria [Unknown]
  - Dry mouth [Unknown]
  - Adverse drug reaction [Unknown]
  - Muscular weakness [Not Recovered/Not Resolved]
  - Arthralgia [Not Recovered/Not Resolved]

NARRATIVE: CASE EVENT DATE: 20200701
